FAERS Safety Report 6486470-6 (Version None)
Quarter: 2009Q4

REPORT INFORMATION
  Report Type: 
  Country: None (occurrence: None)
  Receive Date: 20091210
  Receipt Date: 20091201
  Transmission Date: 20100525
  Serious: Yes (Other)
  Sender: FDA-Public Use
  Company Number: BR-ASTRAZENECA-2009SE29855

PATIENT
  Age: 80 Year
  Sex: Female

DRUGS (7)
  1. CRESTOR [Suspect]
     Indication: BLOOD CHOLESTEROL INCREASED
     Dosage: OD
     Route: 048
     Dates: start: 20080101, end: 20091201
  2. APROVEL [Concomitant]
     Indication: HYPERTENSION
     Dosage: OD
     Route: 048
     Dates: start: 20081001
  3. ATENOLOL [Concomitant]
     Indication: HEART RATE IRREGULAR
     Dosage: OD
     Route: 048
     Dates: start: 20081001
  4. ASPIRIN [Concomitant]
     Indication: ANTIPLATELET THERAPY
     Dosage: OD
     Route: 048
     Dates: start: 20081001
  5. NOOTROPIL [Concomitant]
     Indication: COGNITIVE DISORDER
     Dosage: OD
     Route: 048
     Dates: start: 20081001
  6. SERTRALINE HCL [Concomitant]
     Indication: DEPRESSION
     Dosage: OD
     Route: 048
     Dates: start: 20081001
  7. PLAGREL [Concomitant]
     Indication: ANTIPLATELET THERAPY
     Dosage: OD
     Dates: end: 20091001

REACTIONS (3)
  - ANGINA PECTORIS [None]
  - LOW DENSITY LIPOPROTEIN [None]
  - MEMORY IMPAIRMENT [None]
